FAERS Safety Report 8984194 (Version 1)
Quarter: 2012Q4

REPORT INFORMATION
  Report Type: 
  Country: CO (occurrence: CO)
  Receive Date: 20121226
  Receipt Date: 20121226
  Transmission Date: 20130627
  Serious: Yes (Hospitalization)
  Sender: FDA-Public Use
  Company Number: CO-AMGEN-COLSP2012082365

PATIENT
  Age: 42 Year
  Sex: Female

DRUGS (8)
  1. ENBREL [Suspect]
     Indication: PRODUCT USED FOR UNKNOWN INDICATION
     Dosage: 50 mg, weekly
     Route: 058
     Dates: start: 2007
  2. PREDNISOLONE [Concomitant]
     Indication: ARTHRITIS
     Dosage: 5 mg, 1x/day
     Route: 048
     Dates: start: 1997
  3. CHLOROQUINE [Concomitant]
     Indication: ARTHRITIS
     Dosage: 250 mg, 1x/day
     Route: 048
     Dates: start: 1997
  4. OMEPRAZOLE [Concomitant]
     Indication: PROPHYLAXIS AGAINST GASTROINTESTINAL ULCER
     Dosage: 20 mg, weekly
     Route: 048
     Dates: start: 1997
  5. FOLIC ACID [Concomitant]
     Dosage: 1 mg, UNK
     Dates: start: 1997
  6. METHOTREXATE [Concomitant]
     Dosage: 2.5 mg, UNK
  7. CALCIUM WITH VITAMIN D             /00944201/ [Concomitant]
     Indication: ARTHRITIS
     Dosage: 600 mg, UNK
  8. STRONTIUM RANELATE [Concomitant]
     Indication: BLOOD CALCIUM
     Dosage: 2 mg, UNK
     Dates: start: 201207

REACTIONS (3)
  - Calculus urinary [Unknown]
  - Breast cellulitis [Unknown]
  - Cellulitis [Unknown]
